FAERS Safety Report 4592024-9 (Version None)
Quarter: 2005Q1

REPORT INFORMATION
  Report Type: 
  Country: None (occurrence: None)
  Receive Date: 20050225
  Receipt Date: 20041214
  Transmission Date: 20050727
  Serious: Yes (Death, Hospitalization, Disabling)
  Sender: FDA-Public Use
  Company Number: US-GLAXOSMITHKLINE-A0537144A

PATIENT
  Age: 50 Year
  Sex: Female
  Weight: 75.9 kg

DRUGS (4)
  1. TOPOTECAN [Suspect]
     Indication: OESOPHAGEAL CANCER METASTATIC
     Dosage: 4MG SINGLE DOSE
     Route: 048
     Dates: start: 20041208, end: 20041208
  2. LOVENOX [Concomitant]
     Indication: DEEP VEIN THROMBOSIS
     Dosage: 120MG PER DAY
     Route: 058
     Dates: start: 20031216, end: 20041211
  3. CODEINE SUL TAB [Concomitant]
     Indication: PAIN
     Dosage: 15MG SIX TIMES PER DAY
     Route: 048
     Dates: start: 20041109
  4. OXYCODONE [Concomitant]
     Indication: PAIN
     Dosage: 5MG SIX TIMES PER DAY
     Route: 048
     Dates: start: 20040708

REACTIONS (14)
  - CEREBROVASCULAR ACCIDENT [None]
  - COUGH [None]
  - DILATATION ATRIAL [None]
  - DYSARTHRIA [None]
  - EYE PAIN [None]
  - MALIGNANT NEOPLASM PROGRESSION [None]
  - METASTASES TO CENTRAL NERVOUS SYSTEM [None]
  - MOBILITY DECREASED [None]
  - MOVEMENT DISORDER [None]
  - PERICARDIAL EFFUSION [None]
  - SENSORY LOSS [None]
  - SINUS TACHYCARDIA [None]
  - SPEECH DISORDER [None]
  - VISUAL ACUITY REDUCED [None]
